FAERS Safety Report 22080051 (Version 2)
Quarter: 2023Q1

REPORT INFORMATION
  Report Type: Report from Study
  Country: CN (occurrence: CN)
  Receive Date: 20230309
  Receipt Date: 20230314
  Transmission Date: 20230418
  Serious: Yes (Other)
  Sender: FDA-Public Use
  Company Number: CN-BAYER-2023A024815

PATIENT
  Age: 73 Year
  Sex: Male

DRUGS (8)
  1. SORAFENIB [Suspect]
     Active Substance: SORAFENIB
     Indication: Acute myeloid leukaemia
     Dosage: 400 MG, BID
     Route: 048
  2. VENETOCLAX [Suspect]
     Active Substance: VENETOCLAX
     Dosage: 100 MG, QD
     Route: 048
  3. VENETOCLAX [Suspect]
     Active Substance: VENETOCLAX
     Dosage: 200 MG, QD
     Route: 048
  4. VENETOCLAX [Suspect]
     Active Substance: VENETOCLAX
     Dosage: 300 MG, QD
     Route: 048
  5. VENETOCLAX [Suspect]
     Active Substance: VENETOCLAX
     Dosage: 400 MG, QD
     Route: 048
  6. AZACITIDINE [Suspect]
     Active Substance: AZACITIDINE
     Dosage: 75 MG/M2, QD
  7. OMACETAXINE MEPESUCCINATE [Concomitant]
     Active Substance: OMACETAXINE MEPESUCCINATE
  8. DECITABINE [Concomitant]
     Active Substance: DECITABINE

REACTIONS (6)
  - Agranulocytosis [Recovering/Resolving]
  - Haematotoxicity [Recovering/Resolving]
  - Pneumonia [None]
  - Enterocolitis infectious [None]
  - Off label use [None]
  - Drug ineffective for unapproved indication [None]
